APPROVED DRUG PRODUCT: FENTANYL CITRATE
Active Ingredient: FENTANYL CITRATE
Strength: EQ 0.025MG BASE/0.5ML
Dosage Form/Route: INJECTABLE;INJECTION
Application: N019101 | Product #002
Applicant: HIKMA PHARMACEUTICALS USA INC
Approved: Jan 20, 2023 | RLD: Yes | RS: Yes | Type: RX